FAERS Safety Report 7065722-5 (Version None)
Quarter: 2010Q4

REPORT INFORMATION
  Report Type: 
  Country: None (occurrence: None)
  Receive Date: 20101027
  Receipt Date: 20101014
  Transmission Date: 20110411
  Serious: Yes (Other)
  Sender: FDA-Public Use
  Company Number: PHHY2010RU50813

PATIENT
  Sex: Female

DRUGS (9)
  1. GLEEVEC [Suspect]
     Indication: GASTROINTESTINAL STROMAL TUMOUR
     Dosage: 600 MG DAILY
     Route: 048
     Dates: start: 20070501
  2. GLEEVEC [Suspect]
     Dosage: 800 MG, DAILY
  3. ANTIBIOTICS [Concomitant]
  4. ANTIMYCOBACTERIALS [Concomitant]
  5. LEVOTHYROXINE SODIUM [Concomitant]
     Dosage: 50 MG DAILY
  6. ATENOLOL [Concomitant]
     Dosage: 25 MG DAILY
  7. VIOFORM [Concomitant]
     Dosage: 4 CAPS DAILY
  8. DUSPATALIN [Concomitant]
     Dosage: 2 CAPS DAILY
  9. CREON [Concomitant]
     Dosage: 25000 IU, TID

REACTIONS (6)
  - DIARRHOEA [None]
  - DISBACTERIOSIS [None]
  - DRUG INEFFECTIVE [None]
  - DRUG LEVEL DECREASED [None]
  - GENE MUTATION IDENTIFICATION TEST POSITIVE [None]
  - SURGERY [None]
